FAERS Safety Report 16123008 (Version 4)
Quarter: 2019Q3

REPORT INFORMATION
  Report Type: Spontaneous
  Country: JP (occurrence: JP)
  Receive Date: 20190327
  Receipt Date: 20190820
  Transmission Date: 20191004
  Serious: Yes (Death, Life-Threatening, Hospitalization, Other)
  Sender: FDA-Public Use
  Company Number: JP-BAYER-2019-053573

PATIENT
  Age: 76 Year
  Sex: Female
  Weight: 45 kg

DRUGS (11)
  1. NEXAVAR [Suspect]
     Active Substance: SORAFENIB
     Indication: PAPILLARY THYROID CANCER
     Dosage: DAILY DOSE 800 MG
     Route: 048
     Dates: start: 20190201, end: 20190204
  2. THYRADIN [Concomitant]
     Active Substance: LEVOTHYROXINE
     Indication: THYROIDECTOMY
     Dosage: DAILY DOSE 25 ?G
  3. AZILVA [Concomitant]
     Active Substance: AZILSARTAN KAMEDOXOMIL
     Indication: HYPERTENSION
     Dosage: DAILY DOSE 20MG
     Route: 048
  4. RECALBON [ALFACALCIDOL] [Concomitant]
     Active Substance: ALFACALCIDOL
  5. AMLODIPINE [Concomitant]
     Active Substance: AMLODIPINE BESYLATE
     Dosage: DAILY DOSE 2.5 MG
     Dates: start: 20190212
  6. THYRADIN [Concomitant]
     Active Substance: LEVOTHYROXINE
     Indication: THYROIDECTOMY
     Dosage: DAILY DOSE 75MG
     Route: 048
     Dates: start: 20091212
  7. THYRADIN [Concomitant]
     Active Substance: LEVOTHYROXINE
     Indication: THYROIDECTOMY
     Dosage: DAILY DOSE 50 ?G
  8. NEXAVAR [Suspect]
     Active Substance: SORAFENIB
     Indication: PAPILLARY THYROID CANCER
     Dosage: 200 MG, QD
     Route: 048
     Dates: start: 20190219, end: 20190312
  9. NEOMALLERMIN [Concomitant]
     Active Substance: DEXCHLORPHENIRAMINE MALEATE
  10. NEXAVAR [Suspect]
     Active Substance: SORAFENIB
     Indication: METASTASES TO LUNG
     Dosage: DAILY DOSE 400 MG
     Route: 048
     Dates: start: 20190205, end: 20190212
  11. THYRADIN [Concomitant]
     Active Substance: LEVOTHYROXINE
     Indication: THYROIDECTOMY
     Dosage: DAILY DOSE 75 ?G
     Route: 048
     Dates: start: 20190313

REACTIONS (15)
  - Acute hepatic failure [Fatal]
  - Palmar-plantar erythrodysaesthesia syndrome [Recovering/Resolving]
  - Jaundice [Fatal]
  - Palmar-plantar erythrodysaesthesia syndrome [Recovering/Resolving]
  - Depressed level of consciousness [None]
  - Liver disorder [Fatal]
  - Aspartate aminotransferase increased [Fatal]
  - Bradycardia [None]
  - Hypertension [None]
  - Coma [None]
  - Hyperbilirubinaemia [Fatal]
  - Hepatic encephalopathy [None]
  - Cardiac arrest [None]
  - Hypertension [Recovering/Resolving]
  - Chest discomfort [None]

NARRATIVE: CASE EVENT DATE: 20190205
